FAERS Safety Report 7525606-2 (Version None)
Quarter: 2011Q2

REPORT INFORMATION
  Report Type: 
  Country: None (occurrence: None)
  Receive Date: 20110606
  Receipt Date: 20110523
  Transmission Date: 20111010
  Serious: Yes (Hospitalization, Other)
  Sender: FDA-Public Use
  Company Number: PHEH2008US03194

PATIENT
  Sex: Female
  Weight: 73.469 kg

DRUGS (27)
  1. PERCOCET [Concomitant]
     Dosage: 325 MG, QID
  2. FEMARA [Concomitant]
     Dosage: 2.5 MG, QD
  3. BENAZEPRIL HYDROCHLORIDE [Concomitant]
  4. NEXIUM [Concomitant]
  5. PLAVIX [Concomitant]
  6. TAMOXIFEN CITRATE [Concomitant]
  7. LOVASTATIN [Concomitant]
  8. FLEXERIL [Concomitant]
  9. DURAGESIC-100 [Concomitant]
  10. AREDIA [Suspect]
     Dosage: UNK
  11. MOBIC [Concomitant]
  12. VITAMINS [Concomitant]
  13. ZOMETA [Suspect]
     Dosage: UNK
  14. LORTAB [Concomitant]
     Dosage: 10/500, Q 4 HOURS PRN
  15. ISOSORBIDE [Concomitant]
  16. LEVAQUIN [Concomitant]
  17. NITROGLYCERIN [Concomitant]
  18. ULTRAM [Concomitant]
     Dosage: 50 MG, UNK
  19. VIOXX [Concomitant]
  20. DARVOCET-N 50 [Concomitant]
  21. ATIVAN [Concomitant]
  22. AMBIEN [Concomitant]
  23. ASPIRIN [Concomitant]
  24. LOTREL [Concomitant]
  25. AUGMENTIN '125' [Concomitant]
  26. FENTANYL [Concomitant]
  27. MACRODANTIN [Concomitant]
     Dosage: 100 MG, UNK
     Route: 048

REACTIONS (75)
  - PHYSICAL DISABILITY [None]
  - ANGINA PECTORIS [None]
  - SPINAL OSTEOARTHRITIS [None]
  - SWELLING [None]
  - PAIN IN EXTREMITY [None]
  - EMOTIONAL DISTRESS [None]
  - LYMPHADENOPATHY [None]
  - MELAENA [None]
  - PURULENCE [None]
  - CARDIOMEGALY [None]
  - ENDOMETRIAL CANCER [None]
  - UTERINE LEIOMYOMA [None]
  - MYOCARDIAL INFARCTION [None]
  - CELLULITIS [None]
  - BILIARY DILATATION [None]
  - INFECTION [None]
  - DUODENITIS [None]
  - ESCHERICHIA INFECTION [None]
  - BONE DISORDER [None]
  - GASTROOESOPHAGEAL REFLUX DISEASE [None]
  - ARTERIOSCLEROSIS [None]
  - OSTEOARTHRITIS [None]
  - MITRAL VALVE CALCIFICATION [None]
  - GAIT DISTURBANCE [None]
  - DIZZINESS [None]
  - PANCREATIC DUCT DILATATION [None]
  - PANCREATIC ATROPHY [None]
  - DEPRESSION [None]
  - HEPATOMEGALY [None]
  - GASTRITIS [None]
  - ABDOMINAL HERNIA [None]
  - LYMPHOCYTOSIS [None]
  - LEFT VENTRICULAR HYPERTROPHY [None]
  - GALLBLADDER ENLARGEMENT [None]
  - RENAL ATROPHY [None]
  - SCAR [None]
  - CORONARY ARTERY DISEASE [None]
  - OSTEOPOROSIS [None]
  - OESOPHAGITIS [None]
  - URINARY TRACT INFECTION [None]
  - WEIGHT DECREASED [None]
  - HYPERPLASIA [None]
  - VAGINAL HAEMORRHAGE [None]
  - TRICUSPID VALVE INCOMPETENCE [None]
  - FATIGUE [None]
  - IMPAIRED GASTRIC EMPTYING [None]
  - INJURY [None]
  - ANXIETY [None]
  - OSTEOMYELITIS [None]
  - HYDRONEPHROSIS [None]
  - BLOOD IRON DECREASED [None]
  - URINARY RETENTION [None]
  - GRANULOCYTES MATURATION ARREST [None]
  - EOSINOPHILIA [None]
  - COUGH [None]
  - MITRAL VALVE INCOMPETENCE [None]
  - LEFT ATRIAL DILATATION [None]
  - DYSURIA [None]
  - GASTRIC DILATATION [None]
  - SCOLIOSIS [None]
  - BACK PAIN [None]
  - OSTEOSCLEROSIS [None]
  - ORAL MUCOSAL ERYTHEMA [None]
  - ARTHRALGIA [None]
  - BRONCHITIS [None]
  - OSTEONECROSIS OF JAW [None]
  - PAIN [None]
  - METASTASES TO BONE [None]
  - TOOTH DISORDER [None]
  - PAIN IN JAW [None]
  - BLOOD TRIGLYCERIDES INCREASED [None]
  - BLOOD LACTATE DEHYDROGENASE INCREASED [None]
  - NAUSEA [None]
  - KIDNEY INFECTION [None]
  - SPLENOMEGALY [None]
